FAERS Safety Report 12352304 (Version 1)
Quarter: 2016Q2

REPORT INFORMATION
  Report Type: Spontaneous
  Country: US (occurrence: US)
  Receive Date: 20160510
  Receipt Date: 20160510
  Transmission Date: 20160815
  Serious: Yes (Other)
  Sender: FDA-Public Use
  Company Number: US-PFIZER INC-2016250350

PATIENT
  Sex: Female
  Weight: 66 kg

DRUGS (1)
  1. ZOLOFT [Suspect]
     Active Substance: SERTRALINE HYDROCHLORIDE
     Indication: ANXIETY
     Dosage: 80 MG, DAILY
     Dates: end: 201512

REACTIONS (5)
  - Choking [Unknown]
  - Drug ineffective [Unknown]
  - Throat tightness [Unknown]
  - Dyspnoea [Unknown]
  - Heart rate increased [Unknown]
